FAERS Safety Report 8263196-X (Version None)
Quarter: 2012Q2

REPORT INFORMATION
  Report Type: 
  Country: None (occurrence: None)
  Receive Date: 20120405
  Receipt Date: 20120402
  Transmission Date: 20120825
  Serious: No
  Sender: FDA-Public Use
  Company Number: US-PFIZER INC-2012084041

PATIENT
  Sex: Female
  Weight: 90.703 kg

DRUGS (3)
  1. KLONOPIN [Concomitant]
     Indication: ANXIETY
     Dosage: 0.5 MG, 2X/DAY
     Dates: start: 20120101
  2. PRISTIQ [Suspect]
     Indication: MAJOR DEPRESSION
     Dosage: 50 MG DAILY
     Route: 048
     Dates: start: 20120301, end: 20120101
  3. PRISTIQ [Suspect]
     Dosage: 50 MG ONE AND HALF TABLET DAILY
     Dates: start: 20120301

REACTIONS (3)
  - DRUG INEFFECTIVE [None]
  - DIARRHOEA [None]
  - NAUSEA [None]
